FAERS Safety Report 8437019 (Version 2)
Quarter: 2012Q4

REPORT INFORMATION
  Report Type: 
  Country: US (occurrence: US)
  Receive Date: 20120302
  Receipt Date: 20121010
  Transmission Date: 20130627
  Serious: Yes (Other)
  Sender: FDA-Public Use
  Company Number: US-US-EMD SERONO, INC.-7115194

PATIENT
  Sex: Female

DRUGS (8)
  1. REBIF [Suspect]
     Indication: MULTIPLE SCLEROSIS
     Route: 058
     Dates: start: 20110922
  2. PROVIGIL [Concomitant]
     Indication: HYPERSOMNIA
  3. TIZANIDINE [Concomitant]
     Indication: MUSCLE SPASMS
  4. PAXIL [Concomitant]
     Indication: DEPRESSION
  5. AMITIZA [Concomitant]
     Indication: IRRITABLE BOWEL SYNDROME
  6. TRAZODONE [Concomitant]
     Indication: SLEEP DISORDER
  7. LAMICTAL [Concomitant]
     Indication: CONVULSION
  8. HYDROCODONE [Concomitant]
     Indication: PAIN

REACTIONS (6)
  - Intestinal mass [Recovered/Resolved]
  - Gastrointestinal ulcer [Recovered/Resolved]
  - Constipation [Recovered/Resolved]
  - Injection site bruising [Unknown]
  - Injection site swelling [Unknown]
  - Injection site pain [Unknown]
